FAERS Safety Report 5619741-3 (Version None)
Quarter: 2008Q1

REPORT INFORMATION
  Report Type: 
  Country: None (occurrence: None)
  Receive Date: 20080208
  Receipt Date: 20071130
  Transmission Date: 20080703
  Serious: Yes (Other)
  Sender: FDA-Public Use
  Company Number: A0696774A

PATIENT
  Sex: Female

DRUGS (2)
  1. ALTABAX [Suspect]
     Indication: DRUG USE FOR UNKNOWN INDICATION
     Route: 061
     Dates: start: 20070101, end: 20070101
  2. UNKNOWN [Concomitant]

REACTIONS (1)
  - APPLICATION SITE PRURITUS [None]
